FAERS Safety Report 5779166-7 (Version None)
Quarter: 2008Q2

REPORT INFORMATION
  Report Type: 
  Country: None (occurrence: None)
  Receive Date: 20080619
  Receipt Date: 20080227
  Transmission Date: 20081010
  Serious: No
  Sender: FDA-Public Use
  Company Number: US-BAYER-200810887BCC

PATIENT
  Age: 38 Year
  Sex: Female
  Weight: 109 kg

DRUGS (2)
  1. ALEVE (CAPLET) [Suspect]
     Indication: JOINT SPRAIN
     Dosage: TOTAL DAILY DOSE: 440 MG  UNIT DOSE: 220 MG
     Route: 048
     Dates: start: 20080226, end: 20080227
  2. ALEVE (CAPLET) [Suspect]
     Route: 048
     Dates: start: 20080228

REACTIONS (3)
  - NASOPHARYNGITIS [None]
  - SINUS CONGESTION [None]
  - SNEEZING [None]
